FAERS Safety Report 18419980 (Version 1)
Quarter: 2020Q4

REPORT INFORMATION
  Report Type: Spontaneous
  Country: US (occurrence: US)
  Receive Date: 20201023
  Receipt Date: 20201023
  Transmission Date: 20210114
  Serious: Yes (Other)
  Sender: FDA-Public Use
  Company Number: US-BTGSP-US-BTGSP-20-0236

PATIENT
  Age: 83 Year
  Sex: Female

DRUGS (1)
  1. DIGIFAB [Suspect]
     Active Substance: OVINE DIGOXIN IMMUNE FAB
     Indication: OVERDOSE
     Dosage: 3 VIALS GIVEN FOR ONE DOSE
     Route: 065
     Dates: start: 20200822

REACTIONS (3)
  - Renal impairment [Unknown]
  - Off label use [Unknown]
  - Underdose [Unknown]
